FAERS Safety Report 4270506-7 (Version None)
Quarter: 2004Q1

REPORT INFORMATION
  Report Type: 
  Country: None (occurrence: None)
  Receive Date: 20040113
  Receipt Date: 20040113
  Transmission Date: 20041129
  Serious: Yes (Hospitalization)
  Sender: FDA-Public Use
  Company Number: None

PATIENT
  Sex: Male
  Weight: 81.9877 kg

DRUGS (3)
  1. PACLITAXEL [Suspect]
     Indication: CHEMOTHERAPY
     Dosage: 20 MG/M2 DAILY X5 IV
     Route: 042
     Dates: start: 20031020, end: 20031205
  2. CISPLATIN [Suspect]
     Indication: CHEMOTHERAPY
     Dosage: 15 MG/M2 DAILY X 5 IV
     Route: 042
     Dates: start: 20031020, end: 20031205
  3. NEUPOGEN [Concomitant]

REACTIONS (6)
  - ERYTHEMA [None]
  - FACIAL PAIN [None]
  - PYREXIA [None]
  - SPUTUM CULTURE POSITIVE [None]
  - STAPHYLOCOCCAL INFECTION [None]
  - SWELLING FACE [None]
